FAERS Safety Report 7293629-7 (Version None)
Quarter: 2011Q1

REPORT INFORMATION
  Report Type: 
  Country: None (occurrence: None)
  Receive Date: 20110215
  Receipt Date: 20110211
  Transmission Date: 20110831
  Serious: Yes (Other)
  Sender: FDA-Public Use
  Company Number: A0913153A

PATIENT
  Age: 22 Year
  Sex: Male

DRUGS (1)
  1. MALARONE [Suspect]
     Indication: PROPHYLAXIS
     Route: 048
     Dates: start: 20110203

REACTIONS (4)
  - YELLOW SKIN [None]
  - HYPERSENSITIVITY [None]
  - CHROMATURIA [None]
  - INFLUENZA LIKE ILLNESS [None]
